FAERS Safety Report 6651020-8 (Version None)
Quarter: 2010Q1

REPORT INFORMATION
  Report Type: 
  Country: None (occurrence: None)
  Receive Date: 20100325
  Receipt Date: 20100317
  Transmission Date: 20100710
  Serious: Yes (Life-Threatening, Hospitalization)
  Sender: FDA-Public Use
  Company Number: ZA-ALLERGAN-1001664US

PATIENT
  Age: 61 Year
  Sex: Female

DRUGS (3)
  1. BOTOX [Suspect]
     Indication: SKIN WRINKLING
     Dosage: 60 UNITS, UNK
     Dates: start: 20100129, end: 20100129
  2. JUVEDERM ULTRA [Concomitant]
     Indication: DRUG USE FOR UNKNOWN INDICATION
     Dosage: UNK
     Dates: start: 20100129, end: 20100129
  3. WARFARIN SODIUM [Concomitant]

REACTIONS (1)
  - VASCULITIS [None]
